FAERS Safety Report 13434071 (Version 1)
Quarter: 2017Q2

REPORT INFORMATION
  Report Type: Spontaneous
  Country: SE (occurrence: SE)
  Receive Date: 20170413
  Receipt Date: 20170413
  Transmission Date: 20170830
  Serious: Yes (Hospitalization)
  Sender: FDA-Public Use
  Company Number: SE-TEVA-755310ACC

PATIENT
  Age: 28 Year
  Sex: Female

DRUGS (22)
  1. SPASMOFEN [Suspect]
     Active Substance: CODEINE HYDROCHLORIDE\METHSCOPOLAMINE NITRATE\MORPHINE HYDROCHLORIDE\ NOSCAPINE HYDROCHLORIDE\PAPAVERINE HYDROCHLORIDE
     Dosage: MAXIMUM 10 SUPPOSITORIES
     Dates: start: 20160220, end: 20160220
  2. TRIOBE [Concomitant]
  3. TAVEGYL [Concomitant]
     Active Substance: CLEMASTINE FUMARATE
  4. LAMOTRIGINE. [Concomitant]
     Active Substance: LAMOTRIGINE
  5. PROMETHAZINE [Suspect]
     Active Substance: PROMETHAZINE\PROMETHAZINE HYDROCHLORIDE
     Dosage: 5 GRAM
     Dates: start: 20160220, end: 20160220
  6. KALCIPOS-D [Concomitant]
     Active Substance: CALCIUM CARBONATE\CHOLECALCIFEROL
  7. HALDOL [Concomitant]
     Active Substance: HALOPERIDOL
  8. STESOLID ACTAVIS [Suspect]
     Active Substance: DIAZEPAM
     Dates: start: 20160220, end: 20160220
  9. AKINETON [Concomitant]
     Active Substance: BIPERIDEN HYDROCHLORIDE
  10. HALDOL [Concomitant]
     Active Substance: HALOPERIDOL
  11. ALVEDON 665 MG MODIFIED-RELEASE TABLET [Suspect]
     Active Substance: ACETAMINOPHEN
     Dosage: 30 TABLET
     Route: 048
     Dates: start: 20160220, end: 20160220
  12. DIMETICONE [Concomitant]
     Active Substance: DIMETHICONE
  13. MOVICOL [Concomitant]
     Active Substance: POLYETHYLENE GLYCOL 3350\POTASSIUM CHLORIDE\SODIUM BICARBONATE\SODIUM CHLORIDE
  14. ORALOVITE [Concomitant]
     Active Substance: ASCORBIC ACID\NIACINAMIDE\PYRIDOXINE\RIBOFLAVIN\THIAMINE
  15. CYMBALTA [Concomitant]
     Active Substance: DULOXETINE HYDROCHLORIDE
  16. SINGULAIR [Concomitant]
     Active Substance: MONTELUKAST SODIUM
  17. SERETIDE [Concomitant]
     Active Substance: FLUTICASONE PROPIONATE\SALMETEROL XINAFOATE
  18. PROPAVAN [Suspect]
     Active Substance: PROPIOMAZINE
     Dosage: 5 GRAM
     Dates: start: 20160220, end: 20160220
  19. NITRAZEPAM [Concomitant]
     Active Substance: NITRAZEPAM
  20. EGAZIL [Concomitant]
     Active Substance: HYOSCYAMINE SULFATE
  21. ONDANSETRON [Concomitant]
     Active Substance: ONDANSETRON
  22. VENTOLINE [Concomitant]
     Active Substance: ALBUTEROL

REACTIONS (4)
  - Toxicity to various agents [Recovered/Resolved]
  - Overdose [Recovered/Resolved]
  - Analgesic drug level increased [Recovered/Resolved]
  - Suicide attempt [Recovered/Resolved]

NARRATIVE: CASE EVENT DATE: 20160220
